FAERS Safety Report 23762215 (Version 1)
Quarter: 2024Q2

REPORT INFORMATION
  Report Type: Spontaneous
  Country: HU (occurrence: HU)
  Receive Date: 20240419
  Receipt Date: 20240419
  Transmission Date: 20240716
  Serious: Yes (Death, Other)
  Sender: FDA-Public Use
  Company Number: HU-BRISTOL-MYERS SQUIBB COMPANY-2024-060213

PATIENT

DRUGS (2)
  1. NIVOLUMAB [Suspect]
     Active Substance: NIVOLUMAB
     Indication: Renal cancer
     Dosage: FREQ : ONE DOSE
  2. IPILIMUMAB [Suspect]
     Active Substance: IPILIMUMAB
     Indication: Renal cancer
     Dosage: FREQ : ONE DOSE

REACTIONS (1)
  - Myasthenia gravis [Fatal]
